FAERS Safety Report 9579266 (Version 1)
Quarter: 2013Q4

REPORT INFORMATION
  Report Type: Spontaneous
  Country: US (occurrence: US)
  Receive Date: 20131001
  Receipt Date: 20131001
  Transmission Date: 20140711
  Serious: No
  Sender: FDA-Public Use
  Company Number: US-AMGEN-USASP2013017388

PATIENT
  Age: 66 Year
  Sex: Female
  Weight: 81.63 kg

DRUGS (14)
  1. ENBREL [Suspect]
     Indication: PSORIASIS
     Dosage: UNK
  2. BENADRYL                           /00000402/ [Concomitant]
     Dosage: UNK
  3. COREG [Concomitant]
     Dosage: UNK
  4. CYCLOSPORIN [Concomitant]
     Dosage: UNK
  5. LEVEMIR [Concomitant]
     Dosage: UNK
  6. METFORMIN [Concomitant]
     Dosage: UNK
  7. NOVOLOG [Concomitant]
     Dosage: UNK
  8. PRILOSEC                           /00661201/ [Concomitant]
     Dosage: UNK
  9. PRINIVIL [Concomitant]
     Dosage: UNK
  10. ROPINIROL [Concomitant]
     Dosage: UNK
  11. TRIAMCINOLON                       /00031901/ [Concomitant]
     Dosage: UNK
  12. VITAMIN D                          /00107901/ [Concomitant]
     Dosage: UNK
  13. VITAMIN C                          /00008001/ [Concomitant]
     Dosage: UNK
  14. ZOCOR [Concomitant]
     Dosage: UNK

REACTIONS (1)
  - Drug ineffective [Unknown]
